FAERS Safety Report 16564473 (Version 2)
Quarter: 2019Q3

REPORT INFORMATION
  Report Type: Spontaneous
  Country: US (occurrence: US)
  Receive Date: 20190712
  Receipt Date: 20190724
  Transmission Date: 20191004
  Serious: No
  Sender: FDA-Public Use
  Company Number: US-ASTRAZENECA-2019SE88936

PATIENT
  Sex: Female
  Weight: 59 kg

DRUGS (3)
  1. PULMICORT FLEXHALER [Suspect]
     Active Substance: BUDESONIDE
     Indication: BRONCHITIS
     Dosage: 90.0UG AS REQUIRED
     Route: 055
     Dates: start: 201809
  2. TRAZODONE [Concomitant]
     Active Substance: TRAZODONE HYDROCHLORIDE
     Indication: SLEEP DISORDER
     Route: 048
  3. AMOXICILLIN. [Concomitant]
     Active Substance: AMOXICILLIN
     Indication: SLEEP DISORDER
     Route: 048

REACTIONS (7)
  - Bronchitis [Recovering/Resolving]
  - Product dose omission [Not Recovered/Not Resolved]
  - Product use in unapproved indication [Unknown]
  - Device failure [Unknown]
  - Device issue [Unknown]
  - Off label use [Unknown]
  - Intentional device misuse [Unknown]
